FAERS Safety Report 6997133-2 (Version None)
Quarter: 2010Q3

REPORT INFORMATION
  Report Type: 
  Country: None (occurrence: None)
  Receive Date: 20100918
  Receipt Date: 20090916
  Transmission Date: 20110219
  Serious: No
  Sender: FDA-Public Use
  Company Number: US-WYE-H11030709

PATIENT
  Sex: Male
  Weight: 83.99 kg

DRUGS (6)
  1. PRISTIQ [Suspect]
     Indication: DEPRESSION
     Dosage: 1/2 OF A 50 MG TABLET DAILY
     Route: 048
     Dates: start: 20090101, end: 20090101
  2. PRISTIQ [Suspect]
     Route: 048
     Dates: start: 20090101, end: 20090101
  3. PRISTIQ [Suspect]
     Dosage: DECREASED TO 1/2 OF A 50 MG TABLET DAILY
     Route: 048
     Dates: start: 20090101
  4. BENAZEPRIL HYDROCHLORIDE [Concomitant]
  5. FISH OIL, HYDROGENATED [Concomitant]
  6. AMLODIPINE [Concomitant]

REACTIONS (3)
  - FEELING ABNORMAL [None]
  - NERVOUSNESS [None]
  - TINNITUS [None]
